FAERS Safety Report 12921495 (Version 5)
Quarter: 2017Q2

REPORT INFORMATION
  Report Type: Spontaneous
  Country: GB (occurrence: GB)
  Receive Date: 20161108
  Receipt Date: 20170427
  Transmission Date: 20170830
  Serious: Yes (Hospitalization)
  Sender: FDA-Public Use
  Company Number: GB-SA-2016SA200637

PATIENT
  Age: 30 Year
  Sex: Female
  Weight: 58.5 kg

DRUGS (1)
  1. FABRAZYME [Suspect]
     Active Substance: AGALSIDASE BETA
     Indication: FABRY^S DISEASE
     Route: 041
     Dates: start: 20131128

REACTIONS (5)
  - Syncope [Recovered/Resolved]
  - Infection [Unknown]
  - Hypoaesthesia [Recovered/Resolved]
  - Aphasia [Unknown]
  - Transient ischaemic attack [Recovered/Resolved]

NARRATIVE: CASE EVENT DATE: 2016
